FAERS Safety Report 7113125-7 (Version None)
Quarter: 2010Q4

REPORT INFORMATION
  Report Type: 
  Country: None (occurrence: None)
  Receive Date: 20101119
  Receipt Date: 20101108
  Transmission Date: 20110411
  Serious: Yes (Death)
  Sender: FDA-Public Use
  Company Number: JP-ABBOTT-10P-087-0686351-00

PATIENT
  Age: 82 Year
  Sex: Male

DRUGS (5)
  1. LEUPROLIDE ACETATE [Suspect]
     Indication: PROSTATE CANCER STAGE II
     Dates: start: 20090409
  2. PURSENNID [Concomitant]
     Indication: CONSTIPATION
     Route: 048
  3. MAGMITT [Concomitant]
     Indication: CONSTIPATION
     Route: 048
  4. BUFFERIN [Concomitant]
     Indication: CEREBRAL INFARCTION
     Route: 048
     Dates: start: 20080829
  5. CEROCRAL [Concomitant]
     Indication: CEREBRAL INFARCTION
     Route: 048
     Dates: start: 20081024

REACTIONS (1)
  - PROSTATE CANCER [None]
